FAERS Safety Report 24191167 (Version 1)
Quarter: 2024Q3

REPORT INFORMATION
  Report Type: Report from Study
  Country: US (occurrence: None)
  Receive Date: 20240808
  Receipt Date: 20240808
  Transmission Date: 20241016
  Serious: Yes (Other)
  Sender: ASTRAZENECA
  Company Number: 2022A270831

PATIENT
  Sex: Female

DRUGS (1)
  1. BREZTRI [Suspect]
     Active Substance: BUDESONIDE\FORMOTEROL\GLYCOPYRROLATE
     Indication: Product used for unknown indication
     Dosage: BREZTRI AEROSPHERE INHALER (INHALE 2 PUFFS BY MOUTH TWICE DAILY IN THE MORNING AND EVENING)
     Route: 055

REACTIONS (1)
  - Breast cancer female [Unknown]
